FAERS Safety Report 6645171-1 (Version None)
Quarter: 2010Q1

REPORT INFORMATION
  Report Type: 
  Country: None (occurrence: None)
  Receive Date: 20100308
  Receipt Date: 20100226
  Transmission Date: 20100710
  Serious: No
  Sender: FDA-Public Use
  Company Number: 2010-00296

PATIENT
  Age: 65 Year
  Sex: Male
  Weight: 90.7194 kg

DRUGS (4)
  1. ZICAM COLD REMEDY NASAL GEL [Suspect]
     Dosage: SPORADIC- SPORADIC  [ABOUT 3 YEARS AGO-(?)]
  2. ZICAM COLD REMEDY GEL SWABS [Suspect]
     Dosage: SPORADIC -SPORADIC  [ABOUT 3 YEARS AGO-(?)]
  3. ZICAM COLD REMEDY RAPIDMELTS [Suspect]
     Dosage: SPORADIC- SPORADIC  [ABOUT 3 YEARS AGO-(?)]
  4. ZICAM COLD REMEDY ORAL MIST [Suspect]
     Dosage: SPORADIC -SPORADIC [ABOUT 3 YEARS AGO-(?)]

REACTIONS (2)
  - AGEUSIA [None]
  - ANOSMIA [None]
